FAERS Safety Report 25181424 (Version 2)
Quarter: 2025Q2

REPORT INFORMATION
  Report Type: Spontaneous
  Country: US (occurrence: US)
  Receive Date: 20250410
  Receipt Date: 20250423
  Transmission Date: 20250716
  Serious: Yes (Other)
  Sender: TEVA
  Company Number: US-TEVA-VS-3317344

PATIENT
  Age: 3 Year
  Sex: Female

DRUGS (4)
  1. CYCLOSPORINE [Suspect]
     Active Substance: CYCLOSPORINE
     Indication: Aplastic anaemia
     Route: 065
  2. ACYCLOVIR [Concomitant]
     Active Substance: ACYCLOVIR
     Indication: Evidence based treatment
     Route: 065
  3. VORICONAZOLE [Concomitant]
     Active Substance: VORICONAZOLE
     Indication: Evidence based treatment
     Route: 065
  4. CEFEPIME [Concomitant]
     Active Substance: CEFEPIME HYDROCHLORIDE
     Indication: Evidence based treatment
     Route: 065

REACTIONS (6)
  - Actinomycosis [Recovering/Resolving]
  - Hypophagia [Recovering/Resolving]
  - Obstructive sleep apnoea syndrome [Recovering/Resolving]
  - Gamma-glutamyltransferase increased [Recovering/Resolving]
  - Drug ineffective [Unknown]
  - Blood bilirubin increased [Recovering/Resolving]
